FAERS Safety Report 5051821-6 (Version None)
Quarter: 2006Q3

REPORT INFORMATION
  Report Type: 
  Country: None (occurrence: None)
  Receive Date: 20060712
  Receipt Date: 20060712
  Transmission Date: 20061208
  Serious: Yes (Life-Threatening)
  Sender: FDA-Public Use
  Company Number: None

PATIENT
  Age: 72 Year
  Sex: Female
  Weight: 65.5 kg

DRUGS (14)
  1. ESOMEPRAZOLE MAGNESIUM [Suspect]
     Indication: GASTROOESOPHAGEAL REFLUX DISEASE
     Dosage: 20 MG ONCE DAILY ORAL
     Route: 048
     Dates: start: 20060608, end: 20060609
  2. DOCUSATE [Concomitant]
  3. SIMVASTATIN [Concomitant]
  4. ENTERIC ASPIRIN [Concomitant]
  5. METFORMIN [Concomitant]
  6. ENOXAPARIN SODIUM [Concomitant]
     Route: 058
  7. CELEBREX [Concomitant]
  8. ATENOLOL [Concomitant]
  9. ALENDRONATE SODIUM [Concomitant]
  10. AMLODIPINE [Concomitant]
  11. RANITIDINE [Concomitant]
  12. HYDROCHLOROTHIAZIDE [Concomitant]
  13. LEVOTHYROXINE SODIUM [Concomitant]
  14. LISINOPRIL [Concomitant]

REACTIONS (1)
  - ANGIONEUROTIC OEDEMA [None]
